FAERS Safety Report 4293626-X (Version None)
Quarter: 2004Q1

REPORT INFORMATION
  Report Type: 
  Country: None (occurrence: None)
  Receive Date: 20040210
  Receipt Date: 20040130
  Transmission Date: 20041129
  Serious: Yes (Other)
  Sender: FDA-Public Use
  Company Number: GB-JNJFOC-20040103541

PATIENT
  Age: 45 Year
  Sex: Female
  Weight: 54.12 kg

DRUGS (4)
  1. RISPERDAL [Suspect]
     Indication: SCHIZOPHRENIA
     Dosage: SEE IMAGE
     Route: 048
     Dates: start: 19990601
  2. RISPERDAL [Suspect]
     Indication: SCHIZOPHRENIA
     Dosage: SEE IMAGE
     Route: 048
     Dates: start: 20040118
  3. PROCYCLIDINE HYDROCHLORIDE 2MG TAB [Concomitant]
  4. ZOPICLONE (ZOPICLONE) [Concomitant]

REACTIONS (2)
  - LEUKOPENIA [None]
  - NEUTROPENIA [None]
